FAERS Safety Report 8771520 (Version 1)
Quarter: 2012Q4

REPORT INFORMATION
  Report Type: 
  Country: BR (occurrence: BR)
  Receive Date: 20120905
  Receipt Date: 20120905
  Transmission Date: 20130627
  Serious: Yes (Other)
  Sender: FDA-Public Use
  Company Number: BR-WATSON-2012-15029

PATIENT
  Age: 17 Year
  Sex: Male
  Weight: 60.4 kg

DRUGS (2)
  1. CABERGOLINE (UNKNOWN) [Suspect]
     Indication: PROLACTINOMA
     Dosage: UNK
     Route: 065
  2. BROMOCRIPTINE MESYLATE [Suspect]
     Indication: PROLACTINOMA
     Dosage: 5 mg, daily
     Route: 065

REACTIONS (2)
  - Pituitary haemorrhage [Recovered/Resolved]
  - Drug intolerance [Unknown]
